FAERS Safety Report 7783422-0 (Version None)
Quarter: 2011Q3

REPORT INFORMATION
  Report Type: 
  Country: None (occurrence: None)
  Receive Date: 20110928
  Receipt Date: 20110928
  Transmission Date: 20111222
  Serious: Yes (Other)
  Sender: FDA-Public Use
  Company Number: None

PATIENT
  Age: 45 Year
  Sex: Female
  Weight: 77.564 kg

DRUGS (1)
  1. BONIVA [Suspect]
     Indication: OSTEOPENIA
     Dosage: 1 PILL
     Dates: start: 20110304, end: 20110804

REACTIONS (11)
  - MALAISE [None]
  - ABDOMINAL DISCOMFORT [None]
  - HEPATIC ENZYME ABNORMAL [None]
  - MOBILITY DECREASED [None]
  - NAUSEA [None]
  - DIZZINESS [None]
  - BLOOD COUNT ABNORMAL [None]
  - HYPERTENSION [None]
  - PAIN [None]
  - VERTIGO [None]
  - TOOTH DISORDER [None]
